FAERS Safety Report 6195538-3 (Version None)
Quarter: 2009Q2

REPORT INFORMATION
  Report Type: 
  Country: None (occurrence: None)
  Receive Date: 20090519
  Receipt Date: 20090511
  Transmission Date: 20091009
  Serious: Yes (Hospitalization)
  Sender: FDA-Public Use
  Company Number: PHHY2009JP16266

PATIENT
  Age: 4 Month
  Sex: Male

DRUGS (2)
  1. ZADITEN [Suspect]
     Indication: URTICARIA
     Route: 048
  2. ACETAMINOPHEN [Concomitant]

REACTIONS (2)
  - AGRANULOCYTOSIS [None]
  - PYREXIA [None]
